FAERS Safety Report 16117909 (Version 1)
Quarter: 2019Q1

REPORT INFORMATION
  Report Type: Spontaneous
  Country: US (occurrence: US)
  Receive Date: 20190221
  Receipt Date: 20190221
  Transmission Date: 20190418
  Serious: Yes (Hospitalization)
  Sender: FDA-Public Use
  Company Number: None

PATIENT
  Age: 59 Year
  Sex: Female
  Weight: 81.6 kg

DRUGS (3)
  1. CARBOPLATIN. [Suspect]
     Active Substance: CARBOPLATIN
     Dates: end: 20180530
  2. DOXIL [Suspect]
     Active Substance: DOXORUBICIN HYDROCHLORIDE
  3. LIPOSOMAL [Suspect]
     Active Substance: AMPHOTERICIN B
     Dates: end: 20180530

REACTIONS (2)
  - Packed red blood cell transfusion [None]
  - Anaemia [None]

NARRATIVE: CASE EVENT DATE: 20180622
